FAERS Safety Report 10679259 (Version 1)
Quarter: 2014Q4

REPORT INFORMATION
  Report Type: Spontaneous
  Country: None (occurrence: None)
  Receive Date: 20141224
  Receipt Date: 20141224
  Transmission Date: 20150529
  Serious: No
  Sender: FDA-Public Use
  Company Number: None

PATIENT
  Age: 51 Year
  Sex: Female
  Weight: 64 kg

DRUGS (2)
  1. TOPIRAMATE 25MG [Suspect]
     Active Substance: TOPIRAMATE
     Indication: MIGRAINE
     Route: 048
     Dates: start: 20140815, end: 20141218
  2. ELTROXIN [Concomitant]
     Active Substance: LEVOTHYROXINE

REACTIONS (1)
  - Lichen planus [None]

NARRATIVE: CASE EVENT DATE: 20141112
